FAERS Safety Report 6315626 (Version 5)
Quarter: 2013Q1

REPORT INFORMATION
  Report Type: Report from Study
  Country: BE (occurrence: BE)
  Receive Date: 20070518
  Receipt Date: 20130130
  Transmission Date: 20140127
  Serious: Yes (Hospitalization)
  Sender: FDA-Public Use
  Company Number: BE-JNJFOC-20061200837

PATIENT
  Age: 55 Year
  Sex: Male
  Weight: 73 kg

DRUGS (7)
  1. TMC114 [Suspect]
  2. TMC114 [Suspect]
     Indication: HIV INFECTION
     Dates: start: 20051201
  3. NORVIR [Suspect]
     Indication: HIV INFECTION
     Route: 048
     Dates: start: 20051201
  4. EPIVIR [Concomitant]
     Indication: HIV INFECTION
     Route: 048
     Dates: start: 20050201
  5. RETROVIR [Concomitant]
     Indication: HIV INFECTION
     Route: 048
     Dates: start: 20051201
  6. VIREAD [Concomitant]
     Indication: HIV INFECTION
     Route: 048
     Dates: start: 20051201
  7. AMOXICLAV [Concomitant]
     Indication: BRONCHOPNEUMONIA
     Dates: start: 20061124, end: 20061204

REACTIONS (3)
  - Cellulitis orbital [Recovered/Resolved]
  - Cellulitis orbital [Recovered/Resolved]
  - Immune reconstitution inflammatory syndrome [Recovered/Resolved]
